FAERS Safety Report 8139317-6 (Version None)
Quarter: 2012Q1

REPORT INFORMATION
  Report Type: 
  Country: None (occurrence: None)
  Receive Date: 20120215
  Receipt Date: 20120213
  Transmission Date: 20120608
  Serious: Yes (Death, Hospitalization, Other)
  Sender: FDA-Public Use
  Company Number: GXKR2011DE03035

PATIENT
  Age: 59 Year
  Sex: Female

DRUGS (36)
  1. METHYLPREDNISOLONE [Concomitant]
     Indication: DIARRHOEA
     Dosage: 125 MG, UNK
     Dates: start: 20110910, end: 20110913
  2. METRONIDAZOLE [Concomitant]
     Dosage: 500 MG, BID
     Route: 048
     Dates: end: 20111004
  3. LACTOBACILLUS [Concomitant]
     Dosage: UNK UKN, UNK
     Dates: start: 20110901
  4. NADROPARIN [Concomitant]
     Dosage: 0.6 ML, BID
     Dates: start: 20110929
  5. CIPROFLOXACIN [Concomitant]
     Dosage: UNK UKN, UNK
     Route: 042
     Dates: start: 20111006
  6. INFLIXIMAB [Concomitant]
     Indication: INFLAMMATORY BOWEL DISEASE
     Dosage: 300 MG I.V.
     Dates: start: 20111007
  7. FLUCONAZOLE [Concomitant]
     Dosage: UNK UKN, UNK
     Route: 042
     Dates: start: 20111006
  8. IPILIMUMAB [Suspect]
     Indication: MALIGNANT MELANOMA
     Dosage: 171 MG, UNK
     Route: 042
     Dates: start: 20110719
  9. FRAGMIN [Suspect]
     Dosage: UNK UKN, UNK
     Route: 058
     Dates: start: 20110909, end: 20110927
  10. LOPERAMIDE HCL [Concomitant]
     Indication: DIARRHOEA
     Dosage: UP TO 5 TABLESPOONS, PRN
     Dates: start: 20110922
  11. NADROPARIN [Concomitant]
     Dosage: 0.3 ML, UNK
     Dates: start: 20110926
  12. PREDNISOLONE [Suspect]
     Dosage: 60 MG, UNK
     Route: 048
     Dates: start: 20110927
  13. FILGRASTIM [Concomitant]
     Indication: PANCYTOPENIA
  14. ACETYLSALICYLIC ACID SRT [Suspect]
     Indication: PERIPHERAL ARTERIAL OCCLUSIVE DISEASE
     Dosage: 100 MG, UNK
     Route: 048
     Dates: start: 19960701, end: 20111006
  15. PREDNISOLONE [Suspect]
     Indication: COLITIS
     Dosage: 150 MG, UNK
     Route: 048
     Dates: start: 20110914
  16. IPILIMUMAB [Suspect]
     Dosage: 162 MG, UNK
     Dates: start: 20110902
  17. ARIXTRA [Concomitant]
     Dosage: 2.5 MG, UNK
     Route: 058
     Dates: start: 20110922
  18. ARIXTRA [Concomitant]
     Dosage: UNK MG, UNK, }2.5 MG
     Route: 058
     Dates: end: 20110921
  19. ALPROSTADIL [Concomitant]
     Dosage: UNK UKN, UNK
     Dates: start: 20110916, end: 20110920
  20. ARIXTRA [Concomitant]
     Dosage: UNK MG, UNK, }2.5 MG
     Route: 058
     Dates: start: 20110720, end: 20110909
  21. HEPARIN [Concomitant]
     Dosage: UNK UKN, UNK
  22. PANTOPRAZOLE [Concomitant]
     Dosage: UNK UKN, UNK
     Route: 042
     Dates: start: 20111006
  23. BLOOD CELLS, PACKED HUMAN [Concomitant]
     Dosage: 1 DF, ONCE/SINGLE
     Route: 042
     Dates: start: 20111012, end: 20111012
  24. NADROPARIN [Concomitant]
     Dosage: 0.6 ML, BID
     Dates: start: 20111004, end: 20111004
  25. CIPROFLOXACIN [Concomitant]
     Dosage: 500 MG, UNK
     Route: 048
  26. ARIXTRA [Concomitant]
     Dosage: 2.5 MG, UNK
     Route: 058
     Dates: start: 20110913
  27. PANTOPRAZOLE [Concomitant]
     Dosage: 40 MG, BID
  28. MESALAMINE [Concomitant]
     Dosage: 1 TSP, TID
     Dates: start: 20110919
  29. BLOOD CELLS, PACKED HUMAN [Concomitant]
     Dosage: 2 DF, ONCE/SINGLE
     Route: 042
     Dates: start: 20110916, end: 20110916
  30. BLOOD CELLS, PACKED HUMAN [Concomitant]
     Dosage: 1 DF, ONCE/SINGLE
     Route: 042
     Dates: start: 20110924, end: 20110924
  31. PLATELETS [Concomitant]
     Dosage: 2 DF, ONCE/SINGLE
     Route: 042
     Dates: start: 20111012, end: 20111012
  32. METHYLPREDNISOLONE [Concomitant]
     Dosage: 150 MG, UNK
     Route: 042
     Dates: start: 20110930
  33. ZOPICLON [Concomitant]
     Dosage: UNK UKN, UNK
     Dates: start: 20110719
  34. SALOFALK ^AVENTIS^ [Concomitant]
     Indication: DIARRHOEA
     Dosage: 1500 MG, UNK
     Dates: start: 20110919
  35. BLOOD CELLS, PACKED HUMAN [Concomitant]
     Dosage: 2 DF, ONCE/SINGLE
     Route: 042
     Dates: start: 20111008, end: 20111008
  36. CLINDAMYCIN [Concomitant]
     Dosage: UNK UKN, UNK
     Dates: start: 20111004, end: 20111005

REACTIONS (13)
  - DISEASE PROGRESSION [None]
  - VOMITING [None]
  - DIARRHOEA [None]
  - LARGE INTESTINAL HAEMORRHAGE [None]
  - PANCYTOPENIA [None]
  - CEREBRAL HAEMORRHAGE [None]
  - UNRESPONSIVE TO STIMULI [None]
  - SENSORY LOSS [None]
  - RESPIRATORY FAILURE [None]
  - COLITIS [None]
  - PARESIS [None]
  - VASCULAR OCCLUSION [None]
  - NEOPLASM MALIGNANT [None]
